FAERS Safety Report 24776261 (Version 1)
Quarter: 2024Q4

REPORT INFORMATION
  Report Type: Spontaneous
  Country: NO (occurrence: NO)
  Receive Date: 20241226
  Receipt Date: 20241226
  Transmission Date: 20250115
  Serious: Yes (Death, Hospitalization)
  Sender: STRIDES
  Company Number: NO-STRIDES ARCOLAB LIMITED-2024SP016907

PATIENT
  Age: 44 Year
  Sex: Female

DRUGS (1)
  1. MYCOPHENOLATE MOFETIL [Suspect]
     Active Substance: MYCOPHENOLATE MOFETIL
     Indication: Graft versus host disease in gastrointestinal tract
     Dosage: UNK
     Route: 048

REACTIONS (4)
  - Multiple organ dysfunction syndrome [Fatal]
  - Renal failure [Fatal]
  - Hepatic failure [Fatal]
  - Off label use [Unknown]
